FAERS Safety Report 23994172 (Version 1)
Quarter: 2024Q2

REPORT INFORMATION
  Report Type: Spontaneous
  Country: CN (occurrence: CN)
  Receive Date: 20240620
  Receipt Date: 20240620
  Transmission Date: 20240716
  Serious: Yes (Hospitalization)
  Sender: FDA-Public Use
  Company Number: CN-MLMSERVICE-20240607-PI091936-00263-1

PATIENT
  Age: 27 Year
  Sex: Female

DRUGS (20)
  1. ACETAMINOPHEN [Suspect]
     Active Substance: ACETAMINOPHEN
     Indication: Product used for unknown indication
     Dosage: UNK, UNK
     Route: 065
  2. IMIPENEM [Suspect]
     Active Substance: IMIPENEM
     Indication: Antibiotic therapy
     Dosage: UNK, UNK
     Route: 065
     Dates: start: 202207, end: 20220829
  3. IMIPENEM [Suspect]
     Active Substance: IMIPENEM
     Indication: Anti-infective therapy
  4. OSELTAMIVIR [Suspect]
     Active Substance: OSELTAMIVIR
     Indication: Antiviral treatment
     Dosage: UNK, UNK
     Route: 065
     Dates: start: 202207
  5. CEFTAZIDIME [Suspect]
     Active Substance: CEFTAZIDIME
     Indication: Anti-infective therapy
     Dosage: UNK, UNK
     Route: 065
     Dates: start: 2022
  6. CEFTAZIDIME [Suspect]
     Active Substance: CEFTAZIDIME
     Indication: Antibiotic therapy
  7. CHLORAMPHENICOL [Suspect]
     Active Substance: CHLORAMPHENICOL
     Indication: Antibiotic therapy
     Dosage: UNK, UNK
     Route: 065
     Dates: start: 202207, end: 20220829
  8. CHLORAMPHENICOL [Suspect]
     Active Substance: CHLORAMPHENICOL
     Indication: Anti-infective therapy
  9. PIPERACILLIN SODIUM\TAZOBACTAM SODIUM [Suspect]
     Active Substance: PIPERACILLIN SODIUM\TAZOBACTAM SODIUM
     Indication: Antibiotic therapy
     Dosage: UNK, UNK
     Route: 065
     Dates: start: 20220724, end: 20220724
  10. PIPERACILLIN SODIUM\TAZOBACTAM SODIUM [Suspect]
     Active Substance: PIPERACILLIN SODIUM\TAZOBACTAM SODIUM
     Indication: Anti-infective therapy
  11. MEROPENEM [Suspect]
     Active Substance: MEROPENEM
     Indication: Antibiotic therapy
     Dosage: UNK, UNK
     Route: 065
     Dates: start: 20220724, end: 20220829
  12. MEROPENEM [Suspect]
     Active Substance: MEROPENEM
     Indication: Anti-infective therapy
  13. AMIODARONE [Concomitant]
     Active Substance: AMIODARONE
     Indication: Arrhythmia
     Dosage: UNK, UNK
     Route: 065
     Dates: start: 202207
  14. OXYGEN [Concomitant]
     Active Substance: OXYGEN
     Indication: Oxygen therapy
     Dosage: UNK, UNK
     Route: 055
     Dates: start: 2022
  15. DOPAMINE [Concomitant]
     Active Substance: DOPAMINE HYDROCHLORIDE
     Indication: Vasopressive therapy
     Dosage: UNK, UNK
     Route: 065
     Dates: start: 202207
  16. NOREPINEPHRINE [Concomitant]
     Active Substance: NOREPINEPHRINE\NOREPINEPHRINE BITARTRATE
     Indication: Vasopressive therapy
     Dosage: UNK, UNK
     Route: 065
     Dates: start: 202207
  17. PERAMIVIR [Concomitant]
     Active Substance: PERAMIVIR
     Indication: Antiviral treatment
     Dosage: UNK, UNK
     Route: 065
     Dates: start: 202207
  18. CASPOFUNGIN [Concomitant]
     Active Substance: CASPOFUNGIN
     Indication: Anti-infective therapy
     Dosage: UNK, UNK
     Route: 065
     Dates: start: 202207
  19. HYDROCORTISONE [Concomitant]
     Active Substance: HYDROCORTISONE\HYDROCORTISONE ACETATE
     Indication: Vasopressive therapy
     Dosage: UNK, UNK
     Route: 065
     Dates: start: 202207
  20. GANCICLOVIR [Concomitant]
     Active Substance: GANCICLOVIR
     Indication: Anti-infective therapy
     Dosage: UNK, UNK
     Route: 065
     Dates: start: 202207

REACTIONS (3)
  - Muscular weakness [Recovering/Resolving]
  - Dysbiosis [Recovering/Resolving]
  - Intestinal obstruction [Recovering/Resolving]

NARRATIVE: CASE EVENT DATE: 20220803
